FAERS Safety Report 11525747 (Version 6)
Quarter: 2015Q4

REPORT INFORMATION
  Report Type: Spontaneous
  Country: US (occurrence: US)
  Receive Date: 20150918
  Receipt Date: 20151112
  Transmission Date: 20160304
  Serious: No
  Sender: FDA-Public Use
  Company Number: PHEH2015US018315

PATIENT
  Age: 50 Year
  Sex: Female
  Weight: 58.6 kg

DRUGS (2)
  1. MYFORTIC [Suspect]
     Active Substance: MYCOPHENOLATE SODIUM
     Indication: RENAL TRANSPLANT
     Dosage: 180 MG, BID
     Route: 048
     Dates: start: 2008
  2. PROGRAF [Concomitant]
     Active Substance: TACROLIMUS\TACROLIMUS ANHYDROUS
     Indication: RENAL TRANSPLANT
     Dosage: 2 MG, BID
     Route: 048
     Dates: start: 2008

REACTIONS (5)
  - Nausea [Unknown]
  - Abdominal discomfort [Unknown]
  - Gastrointestinal pain [Unknown]
  - Vomiting [Unknown]
  - Diarrhoea [Unknown]

NARRATIVE: CASE EVENT DATE: 20150915
